FAERS Safety Report 17455289 (Version 2)
Quarter: 2020Q1

REPORT INFORMATION
  Report Type: Spontaneous
  Country: US (occurrence: US)
  Receive Date: 20200225
  Receipt Date: 20200331
  Transmission Date: 20200409
  Serious: Yes (Hospitalization, Other)
  Sender: FDA-Public Use
  Company Number: US-CORCEPT THERAPEUTICS INC.-US-2019CRT000953

PATIENT
  Age: 52 Year
  Sex: Female
  Weight: 141.95 kg

DRUGS (9)
  1. LISINOPRIL HCTZ [Concomitant]
     Active Substance: HYDROCHLOROTHIAZIDE\LISINOPRIL
     Indication: PRODUCT USED FOR UNKNOWN INDICATION
     Dosage: UNK
  2. AMLODIPINE [Concomitant]
     Active Substance: AMLODIPINE BESYLATE
     Indication: PRODUCT USED FOR UNKNOWN INDICATION
     Dosage: UNK
  3. NOVOLIN NOS [Concomitant]
     Active Substance: INSULIN HUMAN
     Indication: PRODUCT USED FOR UNKNOWN INDICATION
     Dosage: UNK
     Route: 058
  4. CARVEDILOL. [Concomitant]
     Active Substance: CARVEDILOL
     Indication: PRODUCT USED FOR UNKNOWN INDICATION
     Dosage: UNK
  5. KORLYM [Suspect]
     Active Substance: MIFEPRISTONE
     Indication: CUSHING^S SYNDROME
     Dosage: 300 MG, QD
     Route: 048
     Dates: start: 20191030, end: 20191111
  6. KORLYM [Suspect]
     Active Substance: MIFEPRISTONE
     Dosage: 600 MG, QD
     Route: 048
     Dates: start: 20191218, end: 20200117
  7. FUROSEMIDE. [Concomitant]
     Active Substance: FUROSEMIDE
     Indication: PRODUCT USED FOR UNKNOWN INDICATION
     Dosage: UNK
  8. KORLYM [Suspect]
     Active Substance: MIFEPRISTONE
     Dosage: 900 MG, QD
     Route: 048
     Dates: start: 20200118, end: 20200227
  9. KORLYM [Suspect]
     Active Substance: MIFEPRISTONE
     Dosage: 300 MG, QD
     Route: 048
     Dates: start: 20191204, end: 20191217

REACTIONS (16)
  - Pulmonary oedema [Unknown]
  - Flatulence [Not Recovered/Not Resolved]
  - Pruritus [Recovered/Resolved]
  - Hot flush [Recovered/Resolved]
  - Oedema peripheral [Recovering/Resolving]
  - Blood pressure increased [Unknown]
  - Pneumonia [Unknown]
  - Blood pressure decreased [Unknown]
  - Glycosylated haemoglobin increased [Not Recovered/Not Resolved]
  - Product dose omission [Recovered/Resolved]
  - Blood potassium decreased [Not Recovered/Not Resolved]
  - Pyrexia [Unknown]
  - Myalgia [Unknown]
  - Diarrhoea [Recovered/Resolved]
  - Pain [Not Recovered/Not Resolved]
  - Blood glucose decreased [Unknown]

NARRATIVE: CASE EVENT DATE: 2019
